FAERS Safety Report 4811603-4 (Version None)
Quarter: 2005Q4

REPORT INFORMATION
  Report Type: 
  Country: None (occurrence: None)
  Receive Date: 20051027
  Receipt Date: 20050118
  Transmission Date: 20060501
  Serious: Yes (Hospitalization, Other)
  Sender: FDA-Public Use
  Company Number: US-MERCK-0501USA02988

PATIENT
  Age: 31 Year
  Sex: Female
  Weight: 73 kg

DRUGS (7)
  1. VIOXX [Suspect]
     Indication: LUPUS NEPHRITIS
     Route: 048
     Dates: start: 20000101, end: 20010917
  2. PREDNISONE [Concomitant]
     Route: 065
  3. NAPROXEN [Concomitant]
     Route: 065
  4. ULTRAM [Concomitant]
     Route: 065
  5. FLEXERIL [Concomitant]
     Route: 065
  6. PLAQUENIL [Concomitant]
     Route: 065
  7. ACETAMINOPHEN AND CODEINE [Concomitant]
     Route: 065

REACTIONS (16)
  - BRONCHITIS ACUTE [None]
  - CEREBROVASCULAR ACCIDENT [None]
  - CHEST PAIN [None]
  - DANDRUFF [None]
  - DEHYDRATION [None]
  - DEPRESSION [None]
  - DRUG EFFECT DECREASED [None]
  - HYPOAESTHESIA [None]
  - MIGRAINE [None]
  - MUSCULOSKELETAL CHEST PAIN [None]
  - OTITIS EXTERNA [None]
  - PHOTOPHOBIA [None]
  - PLEURISY [None]
  - PNEUMONIA [None]
  - POST-TRAUMATIC STRESS DISORDER [None]
  - TINNITUS [None]
